FAERS Safety Report 9010569 (Version 1)
Quarter: 2013Q1

REPORT INFORMATION
  Report Type: Spontaneous
  Country: US (occurrence: US)
  Receive Date: 20130109
  Receipt Date: 20130109
  Transmission Date: 20140127
  Serious: No
  Sender: FDA-Public Use
  Company Number: US-009507513-1301USA002870

PATIENT
  Age: 16 Year
  Sex: Female

DRUGS (2)
  1. NASONEX [Suspect]
     Indication: UPPER-AIRWAY COUGH SYNDROME
     Dosage: 50 MICROGRAM, QD
  2. PANTOPRAZOLE [Concomitant]

REACTIONS (4)
  - Oropharyngeal pain [Unknown]
  - Epistaxis [Unknown]
  - Upper-airway cough syndrome [Unknown]
  - Off label use [Unknown]
